FAERS Safety Report 5166729-5 (Version None)
Quarter: 2006Q4

REPORT INFORMATION
  Report Type: 
  Country: None (occurrence: None)
  Receive Date: 20061129
  Receipt Date: 20061110
  Transmission Date: 20070319
  Serious: Yes (Hospitalization, Other)
  Sender: FDA-Public Use
  Company Number: 248655

PATIENT
  Age: 50 Year
  Sex: Female

DRUGS (11)
  1. ACTIVELLA [Suspect]
     Indication: MENOPAUSAL SYMPTOMS
     Dosage: ORAL
     Route: 048
     Dates: start: 20000816
  2. PREMPRO [Suspect]
     Indication: MENOPAUSAL SYMPTOMS
     Dates: start: 19970701, end: 20020301
  3. PROVERA [Suspect]
     Indication: MENOPAUSAL SYMPTOMS
     Dosage: 10 MG
     Dates: start: 19960501, end: 19970301
  4. PREMARIN /00073001/(ESTROGENS CONJUGATED) [Suspect]
     Indication: MENOPAUSAL SYMPTOMS
     Dates: start: 19970301, end: 19970601
  5. PAXIL [Concomitant]
  6. TOPROL-XL [Concomitant]
  7. ASPIRIN [Concomitant]
  8. COUMADIN [Concomitant]
  9. ASPIRIN /0002701/ (ACETYLSALICYLIC ACID) [Concomitant]
  10. LANOXIN [Concomitant]
  11. TOPROL-XL [Concomitant]

REACTIONS (5)
  - BREAST CANCER FEMALE [None]
  - BREAST CYST [None]
  - BREAST MICROCALCIFICATION [None]
  - METASTASES TO BONE [None]
  - SCAR [None]
